FAERS Safety Report 25848820 (Version 1)
Quarter: 2025Q3

REPORT INFORMATION
  Report Type: Report from Study
  Country: US (occurrence: US)
  Receive Date: 20250925
  Receipt Date: 20250925
  Transmission Date: 20251021
  Serious: Yes (Other)
  Sender: MALLINCKRODT
  Company Number: US-MALLINCKRODT-MNK202505753

PATIENT
  Age: 60 Year
  Sex: Female

DRUGS (13)
  1. CORTICOTROPIN [Suspect]
     Active Substance: CORTICOTROPIN
     Indication: Scleritis
     Route: 058
     Dates: start: 20250630
  2. PREDNISONE [Suspect]
     Active Substance: PREDNISONE
     Indication: Product used for unknown indication
     Dates: start: 2025, end: 2025
  3. PREDNISONE [Suspect]
     Active Substance: PREDNISONE
     Dates: start: 2025
  4. HYDROXYCHLOROQUINE SULFATE [Concomitant]
     Active Substance: HYDROXYCHLOROQUINE SULFATE
  5. OLMESARTAN MEDOXOMIL [Concomitant]
     Active Substance: OLMESARTAN MEDOXOMIL
  6. LEUCOVORIN CALCIUM [Concomitant]
     Active Substance: LEUCOVORIN CALCIUM
  7. AMJEVITA [Concomitant]
     Active Substance: ADALIMUMAB-ATTO
  8. CHOLECALCIFEROL [Concomitant]
     Active Substance: CHOLECALCIFEROL
  9. VITAMIN C [Concomitant]
     Active Substance: ASCORBIC ACID
  10. LEUCOVORIN CALCIUM [Concomitant]
     Active Substance: LEUCOVORIN CALCIUM
  11. SYSTANE (HYPROMELLOSE 2910 (4000 MPA.S)) [Concomitant]
     Active Substance: HYPROMELLOSE 2910 (4000 MPA.S)
  12. FOLIC ACID [Concomitant]
     Active Substance: FOLIC ACID
  13. METHOTREXATE SODIUM [Concomitant]
     Active Substance: METHOTREXATE SODIUM

REACTIONS (17)
  - Scleritis [Unknown]
  - Condition aggravated [Unknown]
  - Photophobia [Not Recovered/Not Resolved]
  - Gingival discomfort [Unknown]
  - Liver function test increased [Unknown]
  - Contusion [Unknown]
  - Glucose tolerance impaired [Unknown]
  - Erythema [Recovering/Resolving]
  - Headache [Unknown]
  - Insomnia [Unknown]
  - Fluid retention [Unknown]
  - Weight increased [Unknown]
  - Rash erythematous [Recovering/Resolving]
  - Injection site scar [Unknown]
  - Injection site pustule [Unknown]
  - Injection site haemorrhage [Unknown]
  - Drug ineffective [Unknown]

NARRATIVE: CASE EVENT DATE: 20250101
